FAERS Safety Report 25595571 (Version 2)
Quarter: 2025Q4

REPORT INFORMATION
  Report Type: Spontaneous
  Country: US (occurrence: US)
  Receive Date: 20250723
  Receipt Date: 20251115
  Transmission Date: 20260117
  Serious: No
  Sender: SUNOVION
  Company Number: US-SMPA-2025SPA008684AA

PATIENT
  Age: 90 Year
  Sex: Female
  Weight: 63.492 kg

DRUGS (1)
  1. GEMTESA [Suspect]
     Active Substance: VIBEGRON
     Indication: Product used for unknown indication
     Dosage: 75 MG, QD TAKEN AT NIGHT
     Route: 048
     Dates: start: 2024

REACTIONS (2)
  - Nocturia [Not Recovered/Not Resolved]
  - Urinary tract infection [Unknown]
